FAERS Safety Report 15327575 (Version 1)
Quarter: 2018Q3

REPORT INFORMATION
  Report Type: Report from Study
  Country: US (occurrence: US)
  Receive Date: 20180828
  Receipt Date: 20180828
  Transmission Date: 20181010
  Serious: Yes (Hospitalization)
  Sender: FDA-Public Use
  Company Number: US-ACTELION-A-NJ2018-168966

PATIENT
  Age: 79 Year
  Sex: Female
  Weight: 61.68 kg

DRUGS (3)
  1. REMODULIN [Concomitant]
     Active Substance: TREPROSTINIL
  2. ADEMPAS [Concomitant]
     Active Substance: RIOCIGUAT
  3. TRACLEER [Suspect]
     Active Substance: BOSENTAN
     Indication: PULMONARY HYPERTENSION
     Dosage: 125 MG, BID
     Route: 048

REACTIONS (7)
  - Fluid overload [Unknown]
  - Hospitalisation [Unknown]
  - Fatigue [Unknown]
  - Dependence on oxygen therapy [Unknown]
  - Pneumonia [Unknown]
  - Asthenia [Unknown]
  - Dyspnoea exertional [Unknown]
